FAERS Safety Report 9499624 (Version 1)
Quarter: 2013Q1

REPORT INFORMATION
  Report Type: Spontaneous
  Country: US (occurrence: None)
  Receive Date: 20130118
  Receipt Date: 20130118
  Transmission Date: 20140127
  Serious: No
  Sender: FDA-Public Use
  Company Number: A-US2012-60113

PATIENT
  Age: 69 Year
  Sex: Male

DRUGS (2)
  1. TRACLEER (BOSENTAN) [Suspect]
     Indication: PULMONARY ARTERIAL HYPERTENSION
     Route: 048
     Dates: start: 20111115
  2. COUMADIN (WARFARIN SODIUM) [Concomitant]

REACTIONS (3)
  - Oedema peripheral [None]
  - No therapeutic response [None]
  - Disease progression [None]
